FAERS Safety Report 10062965 (Version 1)
Quarter: 2014Q2

REPORT INFORMATION
  Report Type: Spontaneous
  Country: US (occurrence: US)
  Receive Date: 20140407
  Receipt Date: 20140407
  Transmission Date: 20141212
  Serious: No
  Sender: FDA-Public Use
  Company Number: US-BAYER-2014-045616

PATIENT
  Age: 55 Year
  Sex: Female
  Weight: 65.76 kg

DRUGS (2)
  1. ALEVE CAPLET [Suspect]
     Indication: BACK PAIN
     Dosage: 2 DF, QD WITH FOOD
     Route: 048
     Dates: start: 201312, end: 20140317
  2. CYMBALTA [Concomitant]

REACTIONS (4)
  - Throat irritation [Recovered/Resolved]
  - Intentional product misuse [None]
  - Gastrooesophageal reflux disease [Recovered/Resolved]
  - Incorrect drug administration duration [None]
